FAERS Safety Report 12630214 (Version 2)
Quarter: 2016Q3

REPORT INFORMATION
  Report Type: Spontaneous
  Country: US (occurrence: US)
  Receive Date: 20160808
  Receipt Date: 20160831
  Transmission Date: 20161109
  Serious: No
  Sender: FDA-Public Use
  Company Number: US-BAYER-2016-146417

PATIENT
  Age: 63 Year

DRUGS (30)
  1. IRON [Concomitant]
     Active Substance: IRON
     Dosage: 324 MG, QOD (AFTER BREAKFAST)
  2. VITAMIN B COMPLEX [Concomitant]
     Active Substance: CYANOCOBALAMIN\DEXPANTHENOL\NIACINAMIDE\PYRIDOXINE HYDROCHLORIDE\RIBOFLAVIN 5^-PHOSPHATE SODIUM\THIAMINE HYDROCHLORIDE\VITAMIN B COMPLEX
     Dosage: 100 MG (AFTER BREAKFAST)
  3. TOPAMAX [Concomitant]
     Active Substance: TOPIRAMATE
     Dosage: 100 MG (BEFORE BED)
  4. EFFEXOR XR [Concomitant]
     Active Substance: VENLAFAXINE HYDROCHLORIDE
  5. PRILOSEC [Concomitant]
     Active Substance: OMEPRAZOLE MAGNESIUM
     Dosage: 40 MG (30 MIN BEFORE BREAKFAST)
  6. POLYETHYLENE GLYCOL 3350. [Concomitant]
     Active Substance: POLYETHYLENE GLYCOL 3350
     Dosage: 1 DAILY AT MORNING MIXED W/ ORANGE JUICE
  7. METFORMIN [Concomitant]
     Active Substance: METFORMIN HYDROCHLORIDE
     Dosage: 500 MG (AFTER BREAKFAST)
  8. METFORMIN [Concomitant]
     Active Substance: METFORMIN HYDROCHLORIDE
     Dosage: 500 MG (BEFORE BED)
  9. TEMAZEPAM. [Concomitant]
     Active Substance: TEMAZEPAM
     Dosage: 30 MG (BEFORE BED)
  10. TOPAMAX [Concomitant]
     Active Substance: TOPIRAMATE
     Dosage: 100 MG, QD (30 MINUTES BEFORE BREAKFAST)
  11. BABY ASPIRIN [Concomitant]
     Active Substance: ASPIRIN
     Dosage: 81 MG, QD (AFTER BREAKFAST)
  12. BETAXOLOL. [Concomitant]
     Active Substance: BETAXOLOL
     Dosage: 10 MG, QD (AFTER BREAKFAST)
  13. PHENERGAN [Concomitant]
     Active Substance: PROMETHAZINE HYDROCHLORIDE
     Indication: NAUSEA
     Dosage: 25 MG PRN
  14. AVELOX [Suspect]
     Active Substance: MOXIFLOXACIN HYDROCHLORIDE
     Dosage: UNK
  15. GEODON [Concomitant]
     Active Substance: ZIPRASIDONE HYDROCHLORIDE\ZIPRASIDONE MESYLATE
  16. MAGNESIUM OXIDE. [Concomitant]
     Active Substance: MAGNESIUM OXIDE
     Dosage: 400 MG (BEFORE BED)
  17. FOLIC ACID. [Concomitant]
     Active Substance: FOLIC ACID
     Dosage: 400 MG (AFTER DINNER)
  18. LYRICA [Concomitant]
     Active Substance: PREGABALIN
     Dosage: 150 MG (AFTER DINNER)
  19. SKELAXIN [Concomitant]
     Active Substance: METAXALONE
  20. VITAMIN B COMPLEX [Concomitant]
     Active Substance: CYANOCOBALAMIN\DEXPANTHENOL\NIACINAMIDE\PYRIDOXINE HYDROCHLORIDE\RIBOFLAVIN 5^-PHOSPHATE SODIUM\THIAMINE HYDROCHLORIDE\VITAMIN B COMPLEX
     Dosage: 100 MG (AFTER DINNER)
  21. REMERON [Concomitant]
     Active Substance: MIRTAZAPINE
     Dosage: 15 MG (BEFORE BED)
  22. SYNTHROID [Concomitant]
     Active Substance: LEVOTHYROXINE SODIUM
     Dosage: 0.75 (1 PER DAY 30 MIN BEFORE BREAKFAST)
  23. TOPAMAX [Concomitant]
     Active Substance: TOPIRAMATE
     Dosage: 100 MG, QD (BEFORE BED)
  24. POTASSIUM [Concomitant]
     Active Substance: POTASSIUM
     Dosage: 99 MG (AFTER BREAKFAST)
  25. POTASSIUM [Concomitant]
     Active Substance: POTASSIUM
     Dosage: 99 MG (BEFORE BEDT)
  26. MAGNESIUM OXIDE. [Concomitant]
     Active Substance: MAGNESIUM OXIDE
     Dosage: 44 MG (AFTER BREAKFAST)
  27. TIZANIDINE. [Concomitant]
     Active Substance: TIZANIDINE
     Indication: MIGRAINE
     Dosage: 4 MG, PRN
  28. BENADRYL [Concomitant]
     Active Substance: DIPHENHYDRAMINE HYDROCHLORIDE
     Indication: PRURITUS
     Dosage: 50 MG (TAKES W/ PAIN MEDICATION)
  29. ZITHROMAX [Concomitant]
     Active Substance: AZITHROMYCIN DIHYDRATE
  30. EFFEXOR [Concomitant]
     Active Substance: VENLAFAXINE HYDROCHLORIDE
     Dosage: 75 MG (BEFORE BED)

REACTIONS (5)
  - Oral mucosal blistering [None]
  - Pruritus [None]
  - Pyrexia [None]
  - Chills [None]
  - Drug hypersensitivity [None]
